FAERS Safety Report 4763934-4 (Version None)
Quarter: 2005Q3

REPORT INFORMATION
  Report Type: 
  Country: None (occurrence: None)
  Receive Date: 20050906
  Receipt Date: 20050525
  Transmission Date: 20060218
  Serious: No
  Sender: FDA-Public Use
  Company Number: 2005-BP-08609BP

PATIENT
  Sex: Female

DRUGS (7)
  1. SPIRIVA [Suspect]
     Indication: CHRONIC OBSTRUCTIVE PULMONARY DISEASE
     Dosage: 18 MCG (18 MCG, QD), IH
     Route: 055
     Dates: start: 20050201
  2. FORTEO [Concomitant]
  3. SYNTHROID [Concomitant]
  4. XANAX [Concomitant]
  5. COUMADIN [Concomitant]
  6. CITRICAL (CALCIUM CARBONATE) [Concomitant]
  7. MTV [Concomitant]

REACTIONS (2)
  - CONSTIPATION [None]
  - DYSGEUSIA [None]
